FAERS Safety Report 5382037-1 (Version None)
Quarter: 2007Q3

REPORT INFORMATION
  Report Type: 
  Country: None (occurrence: None)
  Receive Date: 20070709
  Receipt Date: 20070702
  Transmission Date: 20080115
  Serious: Yes (Disabling, Other)
  Sender: FDA-Public Use
  Company Number: US-ASTRAZENECA-2006UW22890

PATIENT
  Age: 42 Year
  Sex: Female
  Weight: 63.6 kg

DRUGS (3)
  1. SEROQUEL [Suspect]
     Dosage: 100 - 200 MG
     Route: 048
     Dates: start: 19990101, end: 20020101
  2. RISPERDAL [Concomitant]
  3. ZYPREXA [Concomitant]
     Dates: start: 20060301

REACTIONS (5)
  - ACQUIRED IMMUNODEFICIENCY SYNDROME [None]
  - DIABETES MELLITUS [None]
  - HEPATITIS [None]
  - HIV ANTIGEN POSITIVE [None]
  - INJURY [None]
